FAERS Safety Report 25250948 (Version 1)
Quarter: 2025Q2

REPORT INFORMATION
  Report Type: Spontaneous
  Country: US (occurrence: US)
  Receive Date: 20250429
  Receipt Date: 20250429
  Transmission Date: 20250716
  Serious: No
  Sender: BAYER HEALTHCARE LLC
  Company Number: US-BAYER-2025A054473

PATIENT
  Age: 87 Year
  Sex: Female

DRUGS (1)
  1. MIRALAX [Suspect]
     Active Substance: POLYETHYLENE GLYCOL 3350
     Dosage: UNK UNK, QD, SINCE PAST YEAR, PUT IT IN A TEASPOON AND TAKE IT EVERY NIGHT.
     Route: 048
     Dates: end: 20250420

REACTIONS (2)
  - Product use issue [None]
  - Incorrect dose administered [None]
